FAERS Safety Report 9246204 (Version 2)
Quarter: 2013Q3

REPORT INFORMATION
  Report Type: Spontaneous
  Country: KR (occurrence: KR)
  Receive Date: 20130422
  Receipt Date: 20130712
  Transmission Date: 20140515
  Serious: Yes (Hospitalization)
  Sender: FDA-Public Use
  Company Number: KR-ROCHE-1215897

PATIENT
  Age: 48 Year
  Sex: Male

DRUGS (2)
  1. MIRCERA [Suspect]
     Indication: ANAEMIA
     Route: 058
     Dates: start: 20130416, end: 20130416
  2. MIRCERA [Suspect]
     Indication: RENAL FAILURE CHRONIC

REACTIONS (2)
  - Anaphylactic shock [Recovered/Resolved]
  - Nausea [Recovered/Resolved]
